FAERS Safety Report 21630986 (Version 1)
Quarter: 2022Q4

REPORT INFORMATION
  Report Type: Spontaneous
  Country: IT (occurrence: IT)
  Receive Date: 20221123
  Receipt Date: 20221123
  Transmission Date: 20230113
  Serious: Yes (Hospitalization, Other)
  Sender: FDA-Public Use
  Company Number: IT-BRISTOL-MYERS SQUIBB COMPANY-2022-140486

PATIENT
  Age: 9 Decade
  Sex: Female

DRUGS (1)
  1. ELIQUIS [Suspect]
     Active Substance: APIXABAN
     Indication: Product used for unknown indication
     Route: 065

REACTIONS (3)
  - Oesophageal varices haemorrhage [Unknown]
  - Pulmonary embolism [Unknown]
  - COVID-19 [Unknown]

NARRATIVE: CASE EVENT DATE: 20210101
